FAERS Safety Report 6447587-5 (Version None)
Quarter: 2009Q4

REPORT INFORMATION
  Report Type: 
  Country: None (occurrence: None)
  Receive Date: 20091119
  Receipt Date: 20090324
  Transmission Date: 20100525
  Serious: Yes (Other)
  Sender: FDA-Public Use
  Company Number: US-AMGEN-QUU272721

PATIENT
  Sex: Male

DRUGS (4)
  1. ENBREL [Suspect]
     Indication: PSORIASIS
     Route: 058
     Dates: start: 20070305, end: 20080401
  2. ENBREL [Suspect]
     Indication: PSORIATIC ARTHROPATHY
  3. PAXIL [Concomitant]
  4. ATENOLOL [Concomitant]

REACTIONS (4)
  - BLADDER CANCER [None]
  - HEPATITIS B SURFACE ANTIGEN POSITIVE [None]
  - INFECTION [None]
  - TUBERCULIN TEST POSITIVE [None]
